FAERS Safety Report 8168736-7 (Version None)
Quarter: 2012Q1

REPORT INFORMATION
  Report Type: 
  Country: None (occurrence: None)
  Receive Date: 20120103
  Receipt Date: 20111114
  Transmission Date: 20120608
  Serious: No
  Sender: FDA-Public Use
  Company Number: AE-2011-003468

PATIENT
  Age: 65 Year
  Sex: Male
  Weight: 83.0083 kg

DRUGS (10)
  1. RIBAVIRIN [Concomitant]
  2. ADVAIR HFA [Concomitant]
  3. TOPROL-XL [Concomitant]
  4. ISOSORBIDE (ISOSORBIDE) [Concomitant]
  5. VITAMIN E [Concomitant]
  6. INCIVEK [Suspect]
     Dosage: 2250 MG (750 MG,3 IN 1 D),ORAL
     Route: 048
     Dates: start: 20111025
  7. PEGASYS [Concomitant]
  8. BUPROPION HCL [Concomitant]
  9. CITALOPRAM HYDROBROMIDE [Concomitant]
  10. MULTIVITAMIN [Concomitant]

REACTIONS (2)
  - EAR INFECTION [None]
  - SINUSITIS [None]
